FAERS Safety Report 5286819-6 (Version None)
Quarter: 2007Q2

REPORT INFORMATION
  Report Type: 
  Country: None (occurrence: None)
  Receive Date: 20070404
  Receipt Date: 20070330
  Transmission Date: 20071010
  Serious: Yes (Death)
  Sender: FDA-Public Use
  Company Number: 2006UW21552

PATIENT
  Age: 17106 Day
  Sex: Female
  Weight: 118.2 kg

DRUGS (1)
  1. SEROQUEL [Suspect]
     Route: 048
     Dates: end: 20050921

REACTIONS (2)
  - DEATH [None]
  - DIABETES MELLITUS INSULIN-DEPENDENT [None]
